FAERS Safety Report 24897104 (Version 1)
Quarter: 2025Q1

REPORT INFORMATION
  Report Type: Spontaneous
  Country: TR (occurrence: TR)
  Receive Date: 20250128
  Receipt Date: 20250128
  Transmission Date: 20250409
  Serious: Yes (Death, Hospitalization)
  Sender: NOVITIUM PHARMA
  Company Number: TR-NOVITIUMPHARMA-2025TRNVP00220

PATIENT
  Sex: Male

DRUGS (5)
  1. PYRIDOSTIGMINE BROMIDE [Suspect]
     Active Substance: PYRIDOSTIGMINE BROMIDE
     Indication: Myositis
  2. METHYLPREDNISOLONE [Concomitant]
     Active Substance: METHYLPREDNISOLONE
     Indication: Myositis
     Route: 042
  3. Immune-globulin [Concomitant]
     Indication: Myositis
  4. RITUXIMAB [Concomitant]
     Active Substance: RITUXIMAB
     Indication: Myositis
  5. PEMBROLIZUMAB [Concomitant]
     Active Substance: PEMBROLIZUMAB
     Indication: Small cell lung cancer

REACTIONS (1)
  - Therapy non-responder [Fatal]
